FAERS Safety Report 24446243 (Version 1)
Quarter: 2024Q4

REPORT INFORMATION
  Report Type: Spontaneous
  Country: IT (occurrence: IT)
  Receive Date: 20241016
  Receipt Date: 20241016
  Transmission Date: 20250115
  Serious: Yes (Hospitalization)
  Sender: MYLAN
  Company Number: None

PATIENT
  Age: 50 Year
  Sex: Male

DRUGS (14)
  1. PREDNISONE [Suspect]
     Active Substance: PREDNISONE
     Indication: Immunosuppressant drug therapy
     Dosage: 20 MILLIGRAM, QD (D3-D14)
     Route: 065
  2. PREDNISONE [Suspect]
     Active Substance: PREDNISONE
     Dosage: 20 MILLIGRAM, QD (D19-D30)
     Route: 065
  3. METHYLPREDNISOLONE [Suspect]
     Active Substance: METHYLPREDNISOLONE
     Indication: Immunosuppressant drug therapy
     Dosage: 500 MILLIGRAM, QD (D0-D2)
     Route: 042
  4. METHYLPREDNISOLONE [Suspect]
     Active Substance: METHYLPREDNISOLONE
     Dosage: 500 MILLIGRAM, QD (D15-D18)
     Route: 042
  5. MYCOPHENOLATE MOFETIL [Suspect]
     Active Substance: MYCOPHENOLATE MOFETIL
     Indication: Immunosuppressant drug therapy
     Dosage: 1000 MILLIGRAM, QD (POST-OPERATIVE DAY 5, BETWEEN 1000 MG AND 2000 MG A DAY (TOTAL DOSE))
     Route: 048
  6. MYCOPHENOLATE MOFETIL [Suspect]
     Active Substance: MYCOPHENOLATE MOFETIL
     Dosage: 2000 MILLIGRAM, QD (POST-OPERATIVE DAY 5, BETWEEN 1000 MG AND 2000 MG A DAY (TOTAL DOSE))
     Route: 048
  7. TACROLIMUS [Suspect]
     Active Substance: TACROLIMUS
     Indication: Immunosuppressant drug therapy
     Dosage: STANDARD-RELEASE, ADJUSTED TO ACHIEVE A TROUGH LEVEL OF 12?15 NG/ML DURING THE FIRST MONTH
     Route: 048
  8. TACROLIMUS [Suspect]
     Active Substance: TACROLIMUS
     Dosage: 10?12 NG/ML THEREAFTER
     Route: 048
  9. OBINUTUZUMAB [Suspect]
     Active Substance: OBINUTUZUMAB
     Indication: Transplant rejection
     Dosage: 1000 MILLIGRAM, QD (D21)
     Route: 065
  10. HUMAN IMMUNOGLOBULIN G [Suspect]
     Active Substance: HUMAN IMMUNOGLOBULIN G
     Indication: Product used for unknown indication
     Dosage: 2 GRAM PER KILOGRAM (IVIG 2 G/KG TOTAL DOSE (BETWEEN DAY 5 AND 12))
     Route: 042
  11. HUMAN IMMUNOGLOBULIN G [Suspect]
     Active Substance: HUMAN IMMUNOGLOBULIN G
     Dosage: 2 GRAM PER KILOGRAM (2 G/KG TOTAL-DOSE ON DAY 15, 16, AND 17)
     Route: 042
  12. LAPINE T-LYMPHOCYTE IMMUNE GLOBULIN [Suspect]
     Active Substance: LAPINE T-LYMPHOCYTE IMMUNE GLOBULIN
     Indication: Immunosuppressant drug therapy
     Dosage: 5 MILLIGRAM/KILOGRAM (5 MG/KG TOTAL DOSE D0-D4)
     Route: 065
  13. ECULIZUMAB [Suspect]
     Active Substance: ECULIZUMAB
     Indication: Product used for unknown indication
     Dosage: 900 MILLIGRAM, QD (D0)
     Route: 042
  14. ECULIZUMAB [Suspect]
     Active Substance: ECULIZUMAB
     Dosage: 900 MILLIGRAM, QD (ON DAY 18, ANOTHER SHOT)
     Route: 042

REACTIONS (2)
  - Organising pneumonia [Unknown]
  - COVID-19 [Unknown]
